FAERS Safety Report 10058362 (Version 1)
Quarter: 2014Q2

REPORT INFORMATION
  Report Type: Spontaneous
  Country: US (occurrence: None)
  Receive Date: 20140403
  Receipt Date: 20140403
  Transmission Date: 20141212
  Serious: Yes (Life-Threatening)
  Sender: FDA-Public Use
  Company Number: None

PATIENT
  Age: 77 Year
  Sex: Female
  Weight: 94.35 kg

DRUGS (6)
  1. NASACORT [Suspect]
     Indication: RHINORRHOEA
     Dosage: 55 MCG PER SPRAY 2 SPRAYS IN EACH NOSTRIL ONCE WITH TWO A DAY SPRAYS
     Route: 045
     Dates: start: 20140309, end: 20140312
  2. VALSARTAN-HCTZ [Concomitant]
  3. PRAVASTATIN [Concomitant]
  4. ALENDRONATE [Concomitant]
  5. CALCIUM [Concomitant]
  6. CHIA SEEDS [Concomitant]

REACTIONS (6)
  - Haemorrhage [None]
  - Fall [None]
  - Choking sensation [None]
  - Documented hypersensitivity to administered drug [None]
  - Laceration [None]
  - Head injury [None]
